FAERS Safety Report 6054153-2 (Version None)
Quarter: 2009Q1

REPORT INFORMATION
  Report Type: 
  Country: None (occurrence: None)
  Receive Date: 20090127
  Receipt Date: 20090119
  Transmission Date: 20090719
  Serious: Yes (Hospitalization)
  Sender: FDA-Public Use
  Company Number: FR-WYE-H07754209

PATIENT
  Sex: Female

DRUGS (1)
  1. INIPOMP [Suspect]
     Dosage: UNKNOWN
     Route: 048

REACTIONS (3)
  - DRUG INTERACTION [None]
  - DRUG LEVEL INCREASED [None]
  - RENAL FAILURE ACUTE [None]
